FAERS Safety Report 5724609-8 (Version None)
Quarter: 2008Q2

REPORT INFORMATION
  Report Type: 
  Country: None (occurrence: None)
  Receive Date: 20080430
  Receipt Date: 20080430
  Transmission Date: 20081010
  Serious: Yes (Other)
  Sender: FDA-Public Use
  Company Number: None

PATIENT
  Age: 41 Year
  Sex: Female
  Weight: 76 kg

DRUGS (9)
  1. CYCLOSPORINE [Suspect]
     Indication: IMMUNOSUPPRESSION
     Dosage: 100MG IV Q12H
     Route: 042
     Dates: start: 20071212, end: 20080108
  2. OMEPRAZOLE [Concomitant]
  3. VALACYCLOVIR [Concomitant]
  4. FLUCONAZOLE [Concomitant]
  5. FEXOFENADINE/PSEUDOPHEDRINE (ALLEGRA D) [Concomitant]
  6. URSODIOL [Concomitant]
  7. ALBUTEROL [Concomitant]
  8. VANCOMYCIN [Concomitant]
  9. MEROPENEM [Concomitant]

REACTIONS (4)
  - EYE SWELLING [None]
  - MYOPIA [None]
  - RETINAL HAEMORRHAGE [None]
  - VISION BLURRED [None]
